FAERS Safety Report 6594443-8 (Version None)
Quarter: 2010Q1

REPORT INFORMATION
  Report Type: 
  Country: None (occurrence: None)
  Receive Date: 20100222
  Receipt Date: 20100215
  Transmission Date: 20100710
  Serious: Yes (Hospitalization)
  Sender: FDA-Public Use
  Company Number: US-ASTRAZENECA-2010SE06530

PATIENT
  Age: 77 Year
  Sex: Male
  Weight: 77.1 kg

DRUGS (5)
  1. SYMBICORT [Suspect]
     Indication: CHRONIC OBSTRUCTIVE PULMONARY DISEASE
     Dosage: 160/4.5 TWO PUFFS BID
     Route: 055
  2. COUMADIN [Concomitant]
  3. FLOMAX [Concomitant]
  4. PAXIL [Concomitant]
  5. FOLVITE [Concomitant]

REACTIONS (2)
  - PULMONARY THROMBOSIS [None]
  - THROMBOSIS [None]
